FAERS Safety Report 26173333 (Version 1)
Quarter: 2025Q4

REPORT INFORMATION
  Report Type: Spontaneous
  Country: CN (occurrence: CN)
  Receive Date: 20251218
  Receipt Date: 20251218
  Transmission Date: 20260117
  Serious: Yes (Hospitalization)
  Sender: BAXTER
  Company Number: None

PATIENT
  Age: 72 Year
  Sex: Female
  Weight: 72 kg

DRUGS (10)
  1. CYCLOPHOSPHAMIDE [Suspect]
     Active Substance: CYCLOPHOSPHAMIDE
     Indication: Non-Hodgkin^s lymphoma
     Dosage: 1200 MG, QD
     Route: 041
     Dates: start: 20251110, end: 20251110
  2. SODIUM CHLORIDE [Suspect]
     Active Substance: SODIUM CHLORIDE
     Dosage: 100 ML, QD (CYCLOPHOSPHAMIDE + 0.9% SODIUM CHLORIDE))
     Route: 041
     Dates: start: 20251110, end: 20251110
  3. SODIUM CHLORIDE [Suspect]
     Active Substance: SODIUM CHLORIDE
     Dosage: 30 ML, QD (VINDESINE SULFATE + SODIUM CHLORIDE)
     Route: 041
     Dates: start: 20251110, end: 20251110
  4. SODIUM CHLORIDE [Suspect]
     Active Substance: SODIUM CHLORIDE
     Dosage: 500 ML, QD (EPIRUBICIN HYDROCHLORIDE + 0.9% SODIUM CHLORIDE)
     Route: 041
     Dates: start: 20251110, end: 20251110
  5. SODIUM CHLORIDE [Suspect]
     Active Substance: SODIUM CHLORIDE
     Dosage: 250 ML, QD (MORE THAN 2H) (RITUXIMAB + 0.9% SODIUM CHLORIDE))
     Route: 041
     Dates: start: 20251111, end: 20251111
  6. SODIUM CHLORIDE [Suspect]
     Active Substance: SODIUM CHLORIDE
     Dosage: 100 ML, QD (MORE THAN 1H) (RITUXIMAB + 0.9% SODIUM CHLORIDE))
     Route: 041
     Dates: start: 20251111, end: 20251111
  7. RITUXIMAB [Suspect]
     Active Substance: RITUXIMAB
     Indication: Non-Hodgkin^s lymphoma
     Dosage: 500 MG, QD (MORE THAN 2H)
     Route: 041
     Dates: start: 20251111, end: 20251111
  8. RITUXIMAB [Suspect]
     Active Substance: RITUXIMAB
     Dosage: 100 MG, QD (MORE THAN 2H)
     Route: 041
     Dates: start: 20251111, end: 20251111
  9. EPIRUBICIN HYDROCHLORIDE [Suspect]
     Active Substance: EPIRUBICIN HYDROCHLORIDE
     Indication: Non-Hodgkin^s lymphoma
     Dosage: 120 MG, QD
     Route: 041
     Dates: start: 20251110, end: 20251110
  10. VINDESINE SULFATE [Suspect]
     Active Substance: VINDESINE SULFATE
     Indication: Non-Hodgkin^s lymphoma
     Dosage: 4 MG, QD
     Route: 041
     Dates: start: 20251110, end: 20251110

REACTIONS (3)
  - White blood cell count decreased [Recovering/Resolving]
  - Neutrophil count decreased [Recovering/Resolving]
  - Platelet count decreased [Recovering/Resolving]

NARRATIVE: CASE EVENT DATE: 20251118
